FAERS Safety Report 23429905 (Version 1)
Quarter: 2024Q1

REPORT INFORMATION
  Report Type: Spontaneous
  Country: PL (occurrence: PL)
  Receive Date: 20240122
  Receipt Date: 20240122
  Transmission Date: 20240410
  Serious: Yes (Other)
  Sender: FDA-Public Use
  Company Number: PL-ROCHE-3453662

PATIENT
  Age: 12 Year
  Sex: Male

DRUGS (6)
  1. PREDNISOLONE [Suspect]
     Active Substance: PREDNISOLONE
     Indication: Chronic kidney disease
     Route: 065
  2. MYCOPHENOLATE MOFETIL [Concomitant]
     Active Substance: MYCOPHENOLATE MOFETIL
     Indication: Chronic kidney disease
     Route: 065
  3. AMLODIPINE [Concomitant]
     Active Substance: AMLODIPINE BESYLATE
     Indication: Chronic kidney disease
  4. LOSARTAN [Concomitant]
     Active Substance: LOSARTAN
     Indication: Chronic kidney disease
  5. TACROLIMUS [Concomitant]
     Active Substance: TACROLIMUS
     Indication: Focal segmental glomerulosclerosis
     Dosage: FOUR INJECTIONS
     Route: 065
     Dates: start: 2018, end: 202212
  6. RITUXIMAB [Concomitant]
     Active Substance: RITUXIMAB
     Indication: Focal segmental glomerulosclerosis
     Dosage: FOUR INJECTIONS
     Route: 065
     Dates: start: 2018, end: 202212

REACTIONS (1)
  - Drug resistance [Unknown]

NARRATIVE: CASE EVENT DATE: 20221201
